FAERS Safety Report 21227227 (Version 1)
Quarter: 2022Q3

REPORT INFORMATION
  Report Type: Spontaneous
  Country: US (occurrence: None)
  Receive Date: 20220817
  Receipt Date: 20220817
  Transmission Date: 20221027
  Serious: Yes (Disabling, Other)
  Sender: FDA-Public Use
  Company Number: None

PATIENT
  Age: 84 Year
  Sex: Female
  Weight: 78.75 kg

DRUGS (9)
  1. CALCITONIN SALMON [Suspect]
     Active Substance: CALCITONIN SALMON
     Indication: Drug therapy
     Dosage: OTHER STRENGTH : 200 USP/ SPRAY;?OTHER QUANTITY : 1 SPRAY(S);?FREQUENCY : DAILY;?OTHER ROUTE : NASAL
     Route: 050
     Dates: start: 20220520, end: 20220601
  2. LEVOTHYROXIN [Concomitant]
  3. LOSARTAN [Concomitant]
  4. TRIAMTERENE HCTZ [Concomitant]
  5. VITAMIN D3 [Concomitant]
     Active Substance: CHOLECALCIFEROL
  6. centrum adult vitamin [Concomitant]
  7. HERBALS\TURMERIC [Concomitant]
     Active Substance: HERBALS\TURMERIC
  8. probiotic cd [Concomitant]
  9. BIOTIN [Concomitant]
     Active Substance: BIOTIN

REACTIONS (7)
  - Diarrhoea [None]
  - Therapy cessation [None]
  - Peripheral swelling [None]
  - Peripheral swelling [None]
  - Hypersensitivity [None]
  - Lymphoedema [None]
  - Documented hypersensitivity to administered product [None]

NARRATIVE: CASE EVENT DATE: 20220523
